FAERS Safety Report 18740159 (Version 2)
Quarter: 2021Q1

REPORT INFORMATION
  Report Type: Spontaneous
  Country: FR (occurrence: FR)
  Receive Date: 20210114
  Receipt Date: 20210205
  Transmission Date: 20210419
  Serious: Yes (Death, Hospitalization)
  Sender: FDA-Public Use
  Company Number: FR-PFIZER INC-2021011876

PATIENT
  Age: 14 Year
  Sex: Male
  Weight: 57 kg

DRUGS (4)
  1. BEVACIZUMAB. [Suspect]
     Active Substance: BEVACIZUMAB
     Indication: GLIOMA
     Dosage: 550 MG, CYCLIC
     Route: 041
     Dates: start: 20201204, end: 20201204
  2. IRINOTECAN HCL [Suspect]
     Active Substance: IRINOTECAN HYDROCHLORIDE
     Indication: GLIOMA
     Dosage: 200 MG, CYCLIC
     Route: 041
     Dates: start: 20201204, end: 20201204
  3. MULTIVITAMIN AND MINERAL SUPPLEMENT [Suspect]
     Active Substance: MINERALS\VITAMINS
     Dosage: UNK
     Route: 048
     Dates: end: 20201209
  4. BACTRIM [Suspect]
     Active Substance: SULFAMETHOXAZOLE\TRIMETHOPRIM
     Indication: ANTIBIOTIC PROPHYLAXIS
     Dosage: 2400 UG, WEEKLY
     Route: 048
     Dates: end: 20201209

REACTIONS (2)
  - Off label use [Unknown]
  - Hepatocellular injury [Not Recovered/Not Resolved]

NARRATIVE: CASE EVENT DATE: 20201204
